FAERS Safety Report 18994776 (Version 1)
Quarter: 2021Q1

REPORT INFORMATION
  Report Type: Spontaneous
  Country: US (occurrence: US)
  Receive Date: 20210311
  Receipt Date: 20210311
  Transmission Date: 20210420
  Serious: Yes (Other)
  Sender: FDA-Public Use
  Company Number: US-BAUSCH-BL-2021-007340

PATIENT
  Sex: Male

DRUGS (1)
  1. LOTEMAX [Suspect]
     Active Substance: LOTEPREDNOL ETABONATE
     Indication: EYE INFLAMMATION
     Dosage: SINCE 3 YEARS
     Route: 047
     Dates: start: 2018

REACTIONS (3)
  - Inability to afford medication [Unknown]
  - Eye haemorrhage [Unknown]
  - Drug ineffective [Unknown]
